FAERS Safety Report 5807984-5 (Version None)
Quarter: 2008Q3

REPORT INFORMATION
  Report Type: 
  Country: None (occurrence: None)
  Receive Date: 20080708
  Receipt Date: 20080626
  Transmission Date: 20090109
  Serious: Yes (Death, Life-Threatening, Hospitalization)
  Sender: FDA-Public Use
  Company Number: 2008-01939

PATIENT
  Age: 59 Year
  Sex: Male
  Weight: 77.3 kg

DRUGS (11)
  1. VELCADE [Suspect]
     Indication: MULTIPLE MYELOMA
     Dosage: 2.4 MG, INTRAVENOUS
     Route: 042
     Dates: start: 20080401, end: 20080411
  2. DOXORUBICIN HCL [Suspect]
     Indication: MULTIPLE MYELOMA
     Dosage: 17 MG, INTRAVENOUS
     Route: 042
     Dates: start: 20080401, end: 20080404
  3. DEXAMETHASONE TAB [Suspect]
     Indication: MULTIPLE MYELOMA
     Dosage: 40 MG, ORAL
     Route: 048
     Dates: start: 20080401, end: 20080420
  4. CO-TRIMOXAZOLE(SULFAMETHOXAZOLE, TRIMETHOPRIM) N/A [Suspect]
     Indication: DRUG USE FOR UNKNOWN INDICATION
     Dosage: 40 MG, ORAL
     Route: 048
     Dates: start: 20080401, end: 20080420
  5. DIFLUCAN [Suspect]
     Indication: DRUG USE FOR UNKNOWN INDICATION
     Dosage: 200 MG, ORAL
     Route: 048
     Dates: start: 20080401, end: 20080420
  6. PERINDOPRIL ERBUMINE [Concomitant]
  7. DURAGESIC-100 [Concomitant]
  8. MOVICLON (SODIUM BICARBONATE, SODIUM CHLORIDE, MACROGOL, POTASSIUM CHL [Concomitant]
  9. MS CONTIN [Concomitant]
  10. NEXIUM [Concomitant]
  11. ACETAMINOPHEN [Concomitant]

REACTIONS (6)
  - ARRHYTHMIA [None]
  - BRAIN DEATH [None]
  - CARDIAC ARREST [None]
  - HYPERGLYCAEMIA [None]
  - MALAISE [None]
  - MYOCARDIAL INFARCTION [None]
